FAERS Safety Report 6296270-8 (Version None)
Quarter: 2009Q3

REPORT INFORMATION
  Report Type: 
  Country: None (occurrence: None)
  Receive Date: 20090804
  Receipt Date: 20090727
  Transmission Date: 20100115
  Serious: Yes (Death, Life-Threatening)
  Sender: FDA-Public Use
  Company Number: AT-AVENTIS-200914328EU

PATIENT
  Age: 84 Year
  Sex: Female
  Weight: 80 kg

DRUGS (10)
  1. LASIX [Suspect]
     Route: 048
  2. ACECOMB [Suspect]
     Dosage: DOSE: 1DF
     Route: 048
  3. ANTIBIOPHILUS [Concomitant]
     Route: 048
  4. DOXIUM [Concomitant]
     Route: 048
  5. EUTHYROX [Concomitant]
     Route: 048
  6. LESCOL [Concomitant]
     Route: 048
  7. PANTOLOC                           /01263201/ [Concomitant]
     Route: 048
  8. TEBOFORTAN                         /01003101/ [Concomitant]
     Route: 048
  9. ASPIRIN [Concomitant]
     Route: 048
  10. INSULIN MIXTARD 30 [Concomitant]
     Route: 058

REACTIONS (3)
  - DEHYDRATION [None]
  - MYOCARDIAL INFARCTION [None]
  - RENAL FAILURE [None]
